FAERS Safety Report 5625008-X (Version None)
Quarter: 2008Q1

REPORT INFORMATION
  Report Type: 
  Country: None (occurrence: None)
  Receive Date: 20080213
  Receipt Date: 20080201
  Transmission Date: 20080703
  Serious: Yes (Life-Threatening, Hospitalization, Disabling)
  Sender: FDA-Public Use
  Company Number: FR-PFIZER INC-2007097705

PATIENT
  Sex: Female
  Weight: 45 kg

DRUGS (2)
  1. LYRICA [Suspect]
     Indication: SCIATICA
     Route: 048
  2. LYRICA [Suspect]
     Indication: NEURALGIA

REACTIONS (4)
  - ARTERIAL INJURY [None]
  - BRAIN OEDEMA [None]
  - CEREBROVASCULAR ACCIDENT [None]
  - HEMIPLEGIA [None]
